FAERS Safety Report 25116224 (Version 1)
Quarter: 2025Q1

REPORT INFORMATION
  Report Type: Report from Study
  Country: US (occurrence: US)
  Receive Date: 20250325
  Receipt Date: 20250325
  Transmission Date: 20250408
  Serious: No
  Sender: BIOVITRUM
  Company Number: US-BIOVITRUM-2025-US-004001

PATIENT
  Age: 7 Year
  Sex: Female

DRUGS (3)
  1. KINERET [Suspect]
     Active Substance: ANAKINRA
     Indication: Partial seizures
     Route: 058
     Dates: start: 20250213
  2. KINERET [Suspect]
     Active Substance: ANAKINRA
     Indication: Epilepsy
  3. KINERET [Suspect]
     Active Substance: ANAKINRA
     Indication: Simple partial seizures

REACTIONS (3)
  - Nausea [Recovered/Resolved]
  - Vomiting [Recovered/Resolved]
  - Off label use [Not Recovered/Not Resolved]

NARRATIVE: CASE EVENT DATE: 20250213
